FAERS Safety Report 9473281 (Version 1)
Quarter: 2013Q3

REPORT INFORMATION
  Report Type: Spontaneous
  Country: US (occurrence: US)
  Receive Date: 20130823
  Receipt Date: 20130823
  Transmission Date: 20140515
  Serious: No
  Sender: FDA-Public Use
  Company Number: US-BRISTOL-MYERS SQUIBB COMPANY-18833186

PATIENT
  Age: 32 Year
  Sex: Female
  Weight: 58.96 kg

DRUGS (10)
  1. SPRYCEL [Suspect]
     Indication: CHRONIC MYELOID LEUKAEMIA
  2. VORICONAZOLE [Concomitant]
     Indication: PROPHYLAXIS
  3. ACYCLOVIR [Concomitant]
  4. LEXAPRO [Concomitant]
  5. PREDNISONE [Concomitant]
  6. DEXAMETHASONE [Concomitant]
  7. SIROLIMUS [Concomitant]
  8. VITAMIN B6 [Concomitant]
  9. L-CARNITINE [Concomitant]
  10. VITAMIN D [Concomitant]

REACTIONS (1)
  - Nausea [Unknown]
